FAERS Safety Report 9448824 (Version 1)
Quarter: 2013Q3

REPORT INFORMATION
  Report Type: Report from Study
  Country: FR (occurrence: FR)
  Receive Date: 20130808
  Receipt Date: 20130808
  Transmission Date: 20140515
  Serious: Yes (Hospitalization, Other)
  Sender: FDA-Public Use
  Company Number: FR-GENZYME-CAMP-1002716

PATIENT
  Sex: Female

DRUGS (1)
  1. CAMPATH [Suspect]
     Indication: CHRONIC LYMPHOCYTIC LEUKAEMIA
     Dosage: 30 MG/ML, UNK
     Route: 065
     Dates: start: 20121008, end: 20130123

REACTIONS (4)
  - Restrictive pulmonary disease [Unknown]
  - Pyrexia [Unknown]
  - Chills [Unknown]
  - Bronchopneumonia [Unknown]
